FAERS Safety Report 14656423 (Version 1)
Quarter: 2018Q1

REPORT INFORMATION
  Report Type: Spontaneous
  Country: PL (occurrence: PL)
  Receive Date: 20180319
  Receipt Date: 20180319
  Transmission Date: 20180509
  Serious: Yes (Other)
  Sender: FDA-Public Use
  Company Number: PL-OXFORD PHARMACEUTICALS, LLC-2018OXF00018

PATIENT
  Sex: Female

DRUGS (1)
  1. BACLOFEN. [Suspect]
     Active Substance: BACLOFEN
     Route: 048

REACTIONS (3)
  - Toxicity to various agents [Unknown]
  - Overdose [Unknown]
  - Bradycardia [Unknown]
